FAERS Safety Report 7209622-6 (Version None)
Quarter: 2011Q1

REPORT INFORMATION
  Report Type: 
  Country: None (occurrence: None)
  Receive Date: 20110104
  Receipt Date: 20101229
  Transmission Date: 20110831
  Serious: Yes (Other)
  Sender: FDA-Public Use
  Company Number: US-AMGEN-USASP2010012054

PATIENT

DRUGS (7)
  1. ADRIAMYCIN PFS [Concomitant]
  2. ZOFRAN [Concomitant]
  3. NEULASTA [Suspect]
     Indication: NEUTROPENIA
     Dates: start: 20100820
  4. VICODIN [Concomitant]
  5. CYTOXAN [Concomitant]
  6. COMPAZINE [Concomitant]
  7. TYLENOL (CAPLET) [Concomitant]

REACTIONS (1)
  - DRUG INEFFECTIVE [None]
